FAERS Safety Report 18709552 (Version 1)
Quarter: 2021Q1

REPORT INFORMATION
  Report Type: Spontaneous
  Country: IT (occurrence: IT)
  Receive Date: 20210106
  Receipt Date: 20210106
  Transmission Date: 20210419
  Serious: Yes (Hospitalization)
  Sender: FDA-Public Use
  Company Number: IT-PFIZER INC-2021001982

PATIENT
  Age: 53 Year
  Sex: Male

DRUGS (3)
  1. XANAX [Suspect]
     Active Substance: ALPRAZOLAM
     Dosage: 20 ML, SINGLE
     Route: 048
     Dates: start: 20201219, end: 20201219
  2. GARDENALE [PHENOBARBITAL] [Suspect]
     Active Substance: PHENOBARBITAL
     Dosage: 5 DF, SINGLE
     Route: 048
     Dates: start: 20201119, end: 20201219
  3. DELORAZEPAM [Suspect]
     Active Substance: DELORAZEPAM
     Dosage: 20 ML, SINGLE
     Route: 048
     Dates: start: 20201219, end: 20201219

REACTIONS (3)
  - Sopor [Unknown]
  - Intentional overdose [Unknown]
  - Suicide attempt [Unknown]

NARRATIVE: CASE EVENT DATE: 20201219
